FAERS Safety Report 10062492 (Version 1)
Quarter: 2014Q2

REPORT INFORMATION
  Report Type: Spontaneous
  Country: CO (occurrence: CO)
  Receive Date: 20140407
  Receipt Date: 20140407
  Transmission Date: 20141212
  Serious: Yes (Hospitalization)
  Sender: FDA-Public Use
  Company Number: CO-PFIZER INC-2014094108

PATIENT
  Age: 7 Year
  Sex: Female

DRUGS (2)
  1. GENOTROPIN [Suspect]
     Indication: BODY HEIGHT BELOW NORMAL
     Dosage: 0.8 MG, 6 X WEEK
     Route: 058
     Dates: start: 201301, end: 20131207
  2. GENOTROPIN [Suspect]
     Indication: UNDERWEIGHT

REACTIONS (4)
  - Eating disorder symptom [Recovering/Resolving]
  - Choking sensation [Recovering/Resolving]
  - Drug ineffective for unapproved indication [Recovered/Resolved]
  - Off label use [Recovered/Resolved]
